FAERS Safety Report 5504595-6 (Version None)
Quarter: 2007Q4

REPORT INFORMATION
  Report Type: 
  Country: None (occurrence: None)
  Receive Date: 20071101
  Receipt Date: 20071025
  Transmission Date: 20080405
  Serious: Yes (Other)
  Sender: FDA-Public Use
  Company Number: GB-ROXANE LABORATORIES, INC-2007-BP-23370RO

PATIENT
  Age: 55 Year
  Sex: Female

DRUGS (10)
  1. CITALOPRAM HYDROBROMIDE [Suspect]
     Indication: DEPRESSION
     Route: 048
     Dates: start: 20050701, end: 20051201
  2. MIRTAZAPINE [Suspect]
     Indication: DEPRESSION
     Dates: start: 20060707
  3. IMIPRAMINE [Suspect]
     Indication: ANXIETY
     Dates: start: 20060509, end: 20060707
  4. LEVOTHYROXINE SODIUM [Concomitant]
     Dates: start: 20050901
  5. RADIOACTIVE IODINE TREATMENT [Concomitant]
     Indication: HYPERTHYROIDISM
     Dates: start: 20050901
  6. ACETAZOLAMIDE [Concomitant]
     Indication: ANGLE CLOSURE GLAUCOMA
     Route: 042
  7. PILOCARPINE [Concomitant]
     Indication: ANGLE CLOSURE GLAUCOMA
     Route: 031
  8. APRACLONIDINE [Concomitant]
     Indication: ANGLE CLOSURE GLAUCOMA
     Route: 031
  9. LEVOBUNOLOL HCL [Concomitant]
     Indication: ANGLE CLOSURE GLAUCOMA
     Route: 031
  10. PREDNISOLONE [Concomitant]
     Indication: ANGLE CLOSURE GLAUCOMA
     Route: 031

REACTIONS (3)
  - ANGLE CLOSURE GLAUCOMA [None]
  - HEADACHE [None]
  - VISION BLURRED [None]
